FAERS Safety Report 6133148-4 (Version None)
Quarter: 2009Q1

REPORT INFORMATION
  Report Type: 
  Country: None (occurrence: None)
  Receive Date: 20090326
  Receipt Date: 20090317
  Transmission Date: 20090719
  Serious: Yes (Hospitalization, Other)
  Sender: FDA-Public Use
  Company Number: GB-AMGEN-US339149

PATIENT
  Sex: Female

DRUGS (2)
  1. ENBREL [Suspect]
     Indication: PSORIATIC ARTHROPATHY
     Dosage: UNKNOWN
     Route: 065
  2. ENBREL [Suspect]
     Dosage: UNKNOWN

REACTIONS (3)
  - KNEE ARTHROPLASTY [None]
  - NEUTROPENIA [None]
  - SKIN INFECTION [None]
